FAERS Safety Report 8384536-7 (Version None)
Quarter: 2012Q2

REPORT INFORMATION
  Report Type: 
  Country: None (occurrence: None)
  Receive Date: 20120524
  Receipt Date: 20120515
  Transmission Date: 20120825
  Serious: Yes (Other)
  Sender: FDA-Public Use
  Company Number: DE-ABBOTT-12P-062-0936140-00

PATIENT
  Sex: Female

DRUGS (5)
  1. HUMIRA [Suspect]
     Indication: RHEUMATOID ARTHRITIS
     Route: 058
     Dates: start: 20100913, end: 20120227
  2. TIZANIDINE HYDROCHLORIDE [Suspect]
     Indication: PRODUCT USED FOR UNKNOWN INDICATION
     Dates: end: 20120101
  3. LISINOPRIL [Concomitant]
     Indication: PRODUCT USED FOR UNKNOWN INDICATION
  4. CORTISONE ACETATE [Concomitant]
     Indication: PRODUCT USED FOR UNKNOWN INDICATION
  5. TRIAMTERENE [Concomitant]
     Indication: PRODUCT USED FOR UNKNOWN INDICATION

REACTIONS (11)
  - LOSS OF CONSCIOUSNESS [None]
  - ANAPHYLACTIC SHOCK [None]
  - PRURITUS GENERALISED [None]
  - BLOOD TEST ABNORMAL [None]
  - CHOLELITHIASIS [None]
  - PULMONARY FIBROSIS [None]
  - RENAL FUNCTION TEST ABNORMAL [None]
  - PULMONARY OEDEMA [None]
  - RASH [None]
  - RASH ERYTHEMATOUS [None]
  - LIVER FUNCTION TEST ABNORMAL [None]
